FAERS Safety Report 17071160 (Version 1)
Quarter: 2019Q4

REPORT INFORMATION
  Report Type: Spontaneous
  Country: US (occurrence: US)
  Receive Date: 20191025
  Receipt Date: 20191025
  Transmission Date: 20200122
  Serious: Yes (Hospitalization)
  Sender: FDA-Public Use
  Company Number: None

PATIENT
  Sex: Female

DRUGS (6)
  1. METFORMIN [Concomitant]
     Active Substance: METFORMIN HYDROCHLORIDE
  2. MINOCYCLINE [Concomitant]
     Active Substance: MINOCYCLINE HYDROCHLORIDE
  3. HUMIRA [Suspect]
     Active Substance: ADALIMUMAB
     Indication: HIDRADENITIS
     Dosage: ?          OTHER DOSE:40MG/04ML;?
     Route: 058
     Dates: start: 20180124
  4. CIPROFLOXACN [Concomitant]
     Active Substance: CIPROFLOXACIN
  5. HYDROCO/APAP [Concomitant]
     Active Substance: ACETAMINOPHEN\HYDROCODONE
  6. CEPHLAEXIN [Concomitant]

REACTIONS (4)
  - Weight decreased [None]
  - Nephrolithiasis [None]
  - Complication associated with device [None]
  - Condition aggravated [None]
